FAERS Safety Report 20724661 (Version 1)
Quarter: 2022Q2

REPORT INFORMATION
  Report Type: Report from Study
  Country: FR (occurrence: FR)
  Receive Date: 20220419
  Receipt Date: 20220419
  Transmission Date: 20220720
  Serious: Yes (Hospitalization)
  Sender: FDA-Public Use
  Company Number: FR-ABBVIE-22K-056-4363335-00

PATIENT
  Age: 59 Year
  Sex: Male

DRUGS (2)
  1. CARBIDOPA\LEVODOPA [Suspect]
     Active Substance: CARBIDOPA\LEVODOPA
     Indication: Parkinson^s disease
     Route: 050
     Dates: start: 202107
  2. CARBIDOPA\LEVODOPA [Suspect]
     Active Substance: CARBIDOPA\LEVODOPA
     Dosage: MORNING DOSE 6ML, EXTRA DOSE 3ML, CONTINUOUS FLOW RATE 5ML/H?EVERY DAY FROM 8:00 TO 20:00
     Route: 050

REACTIONS (7)
  - Movement disorder [Unknown]
  - Dyskinesia [Unknown]
  - Orthostatic hypotension [Unknown]
  - Stoma site hypergranulation [Unknown]
  - Constipation [Unknown]
  - Dizziness [Unknown]
  - Stoma site erythema [Unknown]

NARRATIVE: CASE EVENT DATE: 20210101
